FAERS Safety Report 13650435 (Version 1)
Quarter: 2017Q2

REPORT INFORMATION
  Report Type: Spontaneous
  Country: US (occurrence: US)
  Receive Date: 20170614
  Receipt Date: 20170614
  Transmission Date: 20170830
  Serious: Yes (Other)
  Sender: FDA-Public Use
  Company Number: None

PATIENT
  Age: 31 Year
  Sex: Female
  Weight: 77.85 kg

DRUGS (1)
  1. HORIZANT [Suspect]
     Active Substance: GABAPENTIN ENACARBIL
     Indication: PAIN IN EXTREMITY
     Dosage: ?          QUANTITY:1 TABLET(S);?
     Route: 048
     Dates: start: 20170612, end: 20170613

REACTIONS (8)
  - Screaming [None]
  - Sleep terror [None]
  - Middle insomnia [None]
  - Hypnagogic hallucination [None]
  - Eye movement disorder [None]
  - Fear [None]
  - Feeling abnormal [None]
  - Crying [None]

NARRATIVE: CASE EVENT DATE: 20170613
